FAERS Safety Report 11139868 (Version 1)
Quarter: 2015Q2

REPORT INFORMATION
  Report Type: Spontaneous
  Country: US (occurrence: None)
  Receive Date: 20150526
  Receipt Date: 20150526
  Transmission Date: 20150821
  Serious: No
  Sender: FDA-Public Use
  Company Number: None

PATIENT
  Age: 56 Year
  Sex: Female

DRUGS (1)
  1. AFINITOR [Suspect]
     Active Substance: EVEROLIMUS
     Indication: METASTATIC NEOPLASM
     Route: 048
     Dates: start: 20150322

REACTIONS (2)
  - Diarrhoea [None]
  - Rash [None]

NARRATIVE: CASE EVENT DATE: 201503
